FAERS Safety Report 10899707 (Version 1)
Quarter: 2015Q1

REPORT INFORMATION
  Report Type: Report from Study
  Country: DE (occurrence: DE)
  Receive Date: 20150309
  Receipt Date: 20150309
  Transmission Date: 20150721
  Serious: Yes (Hospitalization, Other)
  Sender: FDA-Public Use
  Company Number: DE-GILEAD-2015-0131215

PATIENT
  Age: 48 Year
  Sex: Male
  Weight: 100 kg

DRUGS (8)
  1. PROPRA                             /00030001/ [Concomitant]
     Dosage: 10 MG, UNK
  2. KA-VIT EUROMEDICA [Concomitant]
     Dosage: UNK
     Dates: start: 20150220
  3. PANTOPRAZOLE [Concomitant]
     Active Substance: PANTOPRAZOLE SODIUM
     Dosage: 40 MG, UNK
  4. SPIRO COMP [Concomitant]
     Dosage: 50 MG, UNK
     Dates: start: 20150220
  5. DACLATASVIR [Suspect]
     Active Substance: DACLATASVIR
     Indication: CHRONIC HEPATITIS C
     Dosage: 60 MG, QD
     Route: 048
     Dates: start: 20140904, end: 20150219
  6. ALDACTONE [Concomitant]
     Active Substance: SPIRONOLACTONE
     Dosage: 50 MG, QD
  7. SOFOSBUVIR [Suspect]
     Active Substance: SOFOSBUVIR
     Indication: CHRONIC HEPATITIS C
     Dosage: 400 MG, QD
     Route: 048
     Dates: start: 20140904, end: 20150219
  8. CARVEDILOL. [Concomitant]
     Active Substance: CARVEDILOL
     Dosage: 6.25 MG, UNK

REACTIONS (3)
  - Fatigue [Unknown]
  - Oesophageal varices haemorrhage [Recovered/Resolved]
  - Arthralgia [Unknown]

NARRATIVE: CASE EVENT DATE: 20141015
